FAERS Safety Report 12597539 (Version 2)
Quarter: 2017Q1

REPORT INFORMATION
  Report Type: Report from Study
  Country: BR (occurrence: BR)
  Receive Date: 20160726
  Receipt Date: 20170208
  Transmission Date: 20170428
  Serious: No
  Sender: FDA-Public Use
  Company Number: PHHY2016BR101532

PATIENT
  Sex: Male
  Weight: 48 kg

DRUGS (3)
  1. ACLASTA [Suspect]
     Active Substance: ZOLEDRONIC ACID
     Indication: OSTEOPOROSIS
     Dosage: 5 MG, Q12MO
     Route: 042
     Dates: start: 201206
  2. ACLASTA [Suspect]
     Active Substance: ZOLEDRONIC ACID
     Dosage: 5 MG, Q12MO
     Route: 042
     Dates: start: 201509
  3. MABTHERA [Concomitant]
     Active Substance: RITUXIMAB
     Indication: RHEUMATOID ARTHRITIS
     Dosage: (EVERY 6 MONTHS)
     Route: 065

REACTIONS (8)
  - Pain [Unknown]
  - Nasopharyngitis [Unknown]
  - Therapy non-responder [Unknown]
  - Productive cough [Recovering/Resolving]
  - Body surface area decreased [Unknown]
  - Bone density decreased [Unknown]
  - Cough [Recovering/Resolving]
  - Influenza [Recovering/Resolving]
